FAERS Safety Report 10366472 (Version 3)
Quarter: 2014Q3

REPORT INFORMATION
  Report Type: Spontaneous
  Country: JP (occurrence: None)
  Receive Date: 20140804
  Receipt Date: 20140829
  Transmission Date: 20150326
  Serious: Yes (Other)
  Sender: FDA-Public Use
  Company Number: 2014JP010559

PATIENT
  Age: 68 Year
  Sex: Male
  Weight: 53 kg

DRUGS (12)
  1. DECADRON [Suspect]
     Active Substance: DEXAMETHASONE
     Indication: PROPHYLAXIS OF NAUSEA AND VOMITING
     Route: 048
     Dates: start: 20140710, end: 20140712
  2. GASTER D (FAMOTIDINE) [Concomitant]
  3. ALOXI [Suspect]
     Active Substance: PALONOSETRON HYDROCHLORIDE
     Indication: PROPHYLAXIS OF NAUSEA AND VOMITING
     Route: 042
     Dates: start: 20140709, end: 20140709
  4. CISPLATIN (CISPLATIN) [Suspect]
     Active Substance: CISPLATIN
     Indication: NON-SMALL CELL LUNG CANCER
     Route: 041
     Dates: start: 20140709
  5. NETUPITANT [Suspect]
     Active Substance: NETUPITANT
     Indication: PROPHYLAXIS OF NAUSEA AND VOMITING
     Route: 048
     Dates: start: 20140709, end: 20140709
  6. TAXOTERE [Suspect]
     Active Substance: DOCETAXEL
     Indication: NON-SMALL CELL LUNG CANCER
     Route: 041
     Dates: start: 20140709
  7. BUSCOPAN (HYOSCINE BUTYLBROMIDE) [Concomitant]
  8. LOXOPROFEN SODIUM (LOXOPROFEN SODIUM) [Concomitant]
  9. LACTEC G (CALCIUM CHLORIDE ANHYDROUS, POTASSIUM CHLORIDE, SODIUM CHLORIDE, SODIUM ACETATE, SORBITOL) [Concomitant]
  10. DEXART [Suspect]
     Active Substance: DEXAMETHASONE SODIUM PHOSPHATE
     Indication: PROPHYLAXIS OF NAUSEA AND VOMITING
     Route: 042
     Dates: start: 20140709, end: 20140709
  11. AMLODIN [Concomitant]
     Active Substance: AMLODIPINE BESYLATE
  12. PHYSIO (CALCIUM CLUCONATE, GLUCOSE, MAGNESIUM CHLORIDE ANHYDROUS, POTASSIUM CHLORIDE, POTASSIUM PHOSPHATE MONOBASIC SODIUM, ACETATE, SODIUM CHLORIDE, SODIUM LACTATE, SORBITOL) [Concomitant]

REACTIONS (4)
  - Arthralgia [None]
  - Iatrogenic injury [None]
  - Ventricular extrasystoles [None]
  - Abdominal pain upper [None]

NARRATIVE: CASE EVENT DATE: 20140718
